FAERS Safety Report 6690246-4 (Version None)
Quarter: 2010Q2

REPORT INFORMATION
  Report Type: 
  Country: None (occurrence: None)
  Receive Date: 20100421
  Receipt Date: 20100414
  Transmission Date: 20101027
  Serious: Yes (Hospitalization)
  Sender: FDA-Public Use
  Company Number: JP-ROCHE-695169

PATIENT
  Sex: Male
  Weight: 25 kg

DRUGS (6)
  1. TAMIFLU [Suspect]
     Indication: INFLUENZA
     Route: 048
     Dates: start: 20100125, end: 20100125
  2. TAMIFLU [Suspect]
     Route: 048
     Dates: start: 20100126, end: 20100128
  3. ONON [Concomitant]
     Dosage: DRUG REPORTED AS:ONON(PRANLUKAST HYDRATE).
     Route: 048
  4. ZADITEN [Concomitant]
     Dosage: DRUG REPORTED AS ZADITEN(KETOTIFEN FUMARATE).
     Route: 048
  5. MUCODYNE [Concomitant]
     Dosage: DOSE FORM: PERORAL AGENT
     Route: 048
  6. HOKUNALIN [Concomitant]
     Route: 048

REACTIONS (1)
  - ABNORMAL BEHAVIOUR [None]
